FAERS Safety Report 12729273 (Version 1)
Quarter: 2016Q3

REPORT INFORMATION
  Report Type: Spontaneous
  Country: US (occurrence: US)
  Receive Date: 20160909
  Receipt Date: 20160909
  Transmission Date: 20161109
  Serious: Yes (Other)
  Sender: FDA-Public Use
  Company Number: US-AMGEN-USASP2016118582

PATIENT
  Age: 58 Year
  Sex: Male

DRUGS (19)
  1. ZOVIRAX [Concomitant]
     Active Substance: ACYCLOVIR
     Dosage: UNK UNK, BID
  2. ALBUTEROL. [Concomitant]
     Active Substance: ALBUTEROL
     Dosage: 90 MUG, AS NECESSARY
  3. HEPARIN LOCK FLUSH [Concomitant]
     Active Substance: HEPARIN SODIUM
     Dosage: 100 U/L, UNK
  4. MULTIVITAMIN [Concomitant]
     Active Substance: VITAMINS
     Dosage: UNK UNK, QD
  5. NOVOLOG [Concomitant]
     Active Substance: INSULIN ASPART
     Dosage: UNK UNK, AS NECESSARY
     Route: 058
  6. GLUCOPHAGE [Concomitant]
     Active Substance: METFORMIN HYDROCHLORIDE
     Dosage: 750 MG, UNK
  7. INOTUZUMAB [Suspect]
     Active Substance: INOTUZUMAB OZOGAMICIN
     Indication: ACUTE LYMPHOCYTIC LEUKAEMIA
     Route: 065
  8. SULFAMETHOXAZOLE AND TRIMETHOPRIM [Concomitant]
     Active Substance: SULFAMETHOXAZOLE\TRIMETHOPRIM
  9. ARA-C [Concomitant]
     Active Substance: CYTARABINE
  10. BLINCYTO [Suspect]
     Active Substance: BLINATUMOMAB
     Indication: ACUTE LYMPHOCYTIC LEUKAEMIA
     Dosage: UNK
     Route: 065
     Dates: start: 20160527
  11. METHOTREXATE. [Concomitant]
     Active Substance: METHOTREXATE
  12. HYDROCORTISONE. [Concomitant]
     Active Substance: HYDROCORTISONE
  13. ONDANSETRON [Concomitant]
     Active Substance: ONDANSETRON
     Dosage: 8 MG, AS NECESSARY
  14. PROCHLORPERAZINE. [Concomitant]
     Active Substance: PROCHLORPERAZINE
     Dosage: 10 MG, AS NECESSARY
  15. SODIUM CHLORIDE. [Concomitant]
     Active Substance: SODIUM CHLORIDE
  16. DIFLUCAN [Concomitant]
     Active Substance: FLUCONAZOLE
     Dosage: UNK UNK, QD
  17. PANTOPRAZOLE [Concomitant]
     Active Substance: PANTOPRAZOLE SODIUM
     Dosage: 40 MG, QD
  18. TYLENOL EXTRA STRENGTH [Concomitant]
     Active Substance: ACETAMINOPHEN
     Dosage: 500 MG, AS NECESSARY
  19. CLOFARABINE [Concomitant]
     Active Substance: CLOFARABINE

REACTIONS (1)
  - Acute lymphocytic leukaemia recurrent [Unknown]
